FAERS Safety Report 4931088-7 (Version None)
Quarter: 2006Q1

REPORT INFORMATION
  Report Type: 
  Country: None (occurrence: None)
  Receive Date: 20060302
  Receipt Date: 20051005
  Transmission Date: 20060701
  Serious: Yes (Death, Hospitalization)
  Sender: FDA-Public Use
  Company Number: US-MERCK-0510USA04542

PATIENT
  Age: 87 Year
  Sex: Female
  Weight: 67 kg

DRUGS (6)
  1. VIOXX [Suspect]
     Indication: ARTHRALGIA
     Route: 048
     Dates: start: 20001027, end: 20021025
  2. FE-TINIC [Concomitant]
     Route: 048
  3. LEVOXYL [Concomitant]
     Route: 048
  4. PRINIVIL [Concomitant]
     Route: 048
  5. FLAGYL [Concomitant]
     Route: 065
  6. LEVAQUIN [Concomitant]
     Route: 065

REACTIONS (5)
  - CARDIAC FAILURE CONGESTIVE [None]
  - CEREBROVASCULAR ACCIDENT [None]
  - DEATH [None]
  - MALAISE [None]
  - TRANSIENT ISCHAEMIC ATTACK [None]
